FAERS Safety Report 8934533 (Version 2)
Quarter: 2013Q4

REPORT INFORMATION
  Report Type: Spontaneous
  Country: US (occurrence: US)
  Receive Date: 20121129
  Receipt Date: 20131125
  Transmission Date: 20140711
  Serious: No
  Sender: FDA-Public Use
  Company Number: US-GLAXOSMITHKLINE-A0983969A

PATIENT
  Age: 87 Year
  Sex: Female

DRUGS (4)
  1. ADVAIR [Suspect]
     Indication: DYSPNOEA
     Dosage: 1PUFF TWICE PER DAY
     Route: 055
     Dates: end: 20130210
  2. FLOVENT [Suspect]
     Indication: CHRONIC OBSTRUCTIVE PULMONARY DISEASE
     Dosage: 1PUFF TWICE PER DAY
     Route: 055
     Dates: start: 201204, end: 201207
  3. COMBIVENT [Concomitant]
  4. CALCIUM [Concomitant]

REACTIONS (4)
  - Insomnia [Recovering/Resolving]
  - Dysphonia [Recovered/Resolved]
  - Drug intolerance [Recovered/Resolved]
  - Oral mucosal blistering [Unknown]
